FAERS Safety Report 14751079 (Version 1)
Quarter: 2018Q2

REPORT INFORMATION
  Report Type: Spontaneous
  Country: US (occurrence: US)
  Receive Date: 20180412
  Receipt Date: 20180412
  Transmission Date: 20180711
  Serious: No
  Sender: FDA-Public Use
  Company Number: US-BAYER-2018-064586

PATIENT
  Sex: Male

DRUGS (4)
  1. MOISTURIZER [Concomitant]
     Active Substance: UNSPECIFIED INGREDIENT
  2. CLARITIN LIQUI-GELS [Suspect]
     Active Substance: LORATADINE
     Indication: DRY SKIN
     Dosage: 1 DF, QD
     Route: 065
  3. BETAMETHASONE. [Concomitant]
     Active Substance: BETAMETHASONE
  4. CLARITIN LIQUI-GELS [Suspect]
     Active Substance: LORATADINE
     Indication: PRURITUS

REACTIONS (6)
  - Off label use [Unknown]
  - Burning sensation [Unknown]
  - Drug administration error [None]
  - Eye disorder [Unknown]
  - Hypersomnia [Unknown]
  - Product use in unapproved indication [Unknown]
